FAERS Safety Report 5788980-3 (Version None)
Quarter: 2008Q2

REPORT INFORMATION
  Report Type: 
  Country: None (occurrence: None)
  Receive Date: 20080625
  Receipt Date: 20080625
  Transmission Date: 20081010
  Serious: Yes (Hospitalization)
  Sender: FDA-Public Use
  Company Number: None

PATIENT
  Age: 71 Year
  Sex: Male

DRUGS (7)
  1. METFORMIN HCL [Suspect]
     Indication: TYPE 2 DIABETES MELLITUS
     Dosage: ORAL;1000.0 MILLIGRAM
     Route: 048
     Dates: start: 20020730, end: 20080428
  2. FUROSEMIDE [Suspect]
     Indication: OEDEMA
     Dosage: ;40.0 MILLIGRAM(S);1;1
     Dates: start: 20040212, end: 20080428
  3. GEMFIBROZIL [Concomitant]
  4. OMEPRAZOLE [Concomitant]
  5. FELODIPINE [Suspect]
  6. SIMVASTATIN [Concomitant]
  7. LISINOPRIL [Suspect]

REACTIONS (7)
  - ACUTE PRERENAL FAILURE [None]
  - BLOOD GLUCOSE DECREASED [None]
  - LACTIC ACIDOSIS [None]
  - LOSS OF CONSCIOUSNESS [None]
  - MENTAL STATUS CHANGES [None]
  - METABOLIC ACIDOSIS [None]
  - RENAL FAILURE ACUTE [None]
